FAERS Safety Report 9631612 (Version 1)
Quarter: 2013Q4

REPORT INFORMATION
  Report Type: Spontaneous
  Country: GB (occurrence: None)
  Receive Date: 20131015
  Receipt Date: 20131015
  Transmission Date: 20140711
  Serious: Yes (Other)
  Sender: FDA-Public Use
  Company Number: FK201304540

PATIENT
  Sex: Female

DRUGS (1)
  1. ANASTROZOLE (MANUFACTURER UNKNOWN) (ANASTROZOLE) (ANASTROZOLE) [Suspect]
     Indication: PRODUCT USED FOR UNKNOWN INDICATION

REACTIONS (11)
  - Depression [None]
  - Dry mouth [None]
  - Ear disorder [None]
  - Nasal disorder [None]
  - Neuralgia [None]
  - Panic attack [None]
  - Quality of life decreased [None]
  - Dysgeusia [None]
  - Bone pain [None]
  - Myalgia [None]
  - Fatigue [None]
